FAERS Safety Report 17807414 (Version 1)
Quarter: 2020Q2

REPORT INFORMATION
  Report Type: Report from Study
  Country: IT (occurrence: IT)
  Receive Date: 20200520
  Receipt Date: 20200520
  Transmission Date: 20200714
  Serious: Yes (Hospitalization)
  Sender: FDA-Public Use
  Company Number: IT-TEVA-2020-IT-1237322

PATIENT
  Age: 10 Year
  Sex: Male

DRUGS (2)
  1. VINCRISTINA TEVA ITALIA 1 MG/ML SOLUZIONE INIETTABILE [Suspect]
     Active Substance: VINCRISTINE SULFATE
     Indication: ACUTE LYMPHOCYTIC LEUKAEMIA
     Dosage: 1.68 MILLIGRAM
     Route: 042
     Dates: start: 20200401
  2. ADRIBLASTINA 200 MG/100 ML SOLUZIONE INIETTABILE PER USO ENDOVENOSO [Suspect]
     Active Substance: DOXORUBICIN HYDROCHLORIDE
     Indication: ACUTE LYMPHOCYTIC LEUKAEMIA
     Dosage: 33.6 MILLIEQUIVALENTS
     Route: 042
     Dates: start: 20200401

REACTIONS (7)
  - Asthenia [Recovering/Resolving]
  - Blood sodium decreased [Recovering/Resolving]
  - Gait disturbance [Recovering/Resolving]
  - Neutropenia [Recovering/Resolving]
  - Aphthous ulcer [Recovering/Resolving]
  - Pain in extremity [Recovering/Resolving]
  - Melaena [Recovering/Resolving]

NARRATIVE: CASE EVENT DATE: 20200401
